FAERS Safety Report 7247079-X (Version None)
Quarter: 2011Q1

REPORT INFORMATION
  Report Type: 
  Country: None (occurrence: None)
  Receive Date: 20110127
  Receipt Date: 20110121
  Transmission Date: 20110831
  Serious: No
  Sender: FDA-Public Use
  Company Number: JP-JNJFOC-20110106761

PATIENT

DRUGS (1)
  1. DUROTEP MT [Suspect]
     Indication: ILL-DEFINED DISORDER
     Dosage: PRESCRIBED WITH ONE AND A HALF PATCHES OF FENTANYL (MATRIX PATCH) 12.5 UG/HR.
     Route: 062

REACTIONS (1)
  - DRUG PRESCRIBING ERROR [None]
